FAERS Safety Report 23862018 (Version 1)
Quarter: 2024Q2

REPORT INFORMATION
  Report Type: Spontaneous
  Country: CA (occurrence: CA)
  Receive Date: 20240516
  Receipt Date: 20240516
  Transmission Date: 20240716
  Serious: Yes (Hospitalization, Other)
  Sender: FDA-Public Use
  Company Number: CA-AUROBINDO-AUR-APL-2024-022734

PATIENT
  Age: 26 Year
  Sex: Female

DRUGS (3)
  1. TRANEXAMIC ACID [Suspect]
     Active Substance: TRANEXAMIC ACID
     Indication: Heavy menstrual bleeding
     Dosage: UNK
     Route: 065
  2. ULIPRISTAL [Suspect]
     Active Substance: ULIPRISTAL
     Indication: Heavy menstrual bleeding
     Dosage: UNK
     Route: 065
  3. IRON [Suspect]
     Active Substance: IRON
     Indication: Heavy menstrual bleeding
     Dosage: UNK
     Route: 042

REACTIONS (1)
  - Drug ineffective [Unknown]
